FAERS Safety Report 22092146 (Version 1)
Quarter: 2023Q1

REPORT INFORMATION
  Report Type: Spontaneous
  Country: US (occurrence: US)
  Receive Date: 20230314
  Receipt Date: 20230314
  Transmission Date: 20230418
  Serious: Yes (Other)
  Sender: FDA-Public Use
  Company Number: US-AMGEN-USASP2023039406

PATIENT
  Age: 50 Year
  Sex: Female

DRUGS (2)
  1. AVSOLA [Suspect]
     Active Substance: INFLIXIMAB-AXXQ
     Indication: Product used for unknown indication
     Dosage: UNK
     Route: 065
  2. VIMOVO [Suspect]
     Active Substance: ESOMEPRAZOLE MAGNESIUM\NAPROXEN
     Indication: Rheumatoid arthritis
     Dosage: 500/20 MILLIGRAM
     Route: 048

REACTIONS (6)
  - Autoimmune disorder [Unknown]
  - Drug hypersensitivity [Unknown]
  - Breath holding [Unknown]
  - Frustration tolerance decreased [Unknown]
  - Insomnia [Unknown]
  - Pain [Unknown]
